FAERS Safety Report 22068225 (Version 3)
Quarter: 2023Q2

REPORT INFORMATION
  Report Type: Spontaneous
  Country: FR (occurrence: FR)
  Receive Date: 20230307
  Receipt Date: 20230523
  Transmission Date: 20230721
  Serious: Yes (Hospitalization)
  Sender: FDA-Public Use
  Company Number: FR-002147023-NVSC2022FR303298

PATIENT
  Age: 10 Month
  Sex: Female

DRUGS (1)
  1. AMOXICILLIN\CLAVULANIC ACID [Suspect]
     Active Substance: AMOXICILLIN\CLAVULANIC ACID
     Indication: Infective chondritis
     Dosage: 3 DOSAGE FORM, ONCE A DAY (1 DOSAGE FORM, TID)
     Route: 048

REACTIONS (1)
  - Drug ineffective [Unknown]
